FAERS Safety Report 15023548 (Version 1)
Quarter: 2018Q2

REPORT INFORMATION
  Report Type: Spontaneous
  Country: DE (occurrence: DE)
  Receive Date: 20180618
  Receipt Date: 20180618
  Transmission Date: 20180711
  Serious: Yes (Hospitalization)
  Sender: FDA-Public Use
  Company Number: DE-TEVA-2018-DE-892355

PATIENT
  Age: 79 Year
  Sex: Female
  Weight: 120 kg

DRUGS (24)
  1. FENTANYL. [Concomitant]
     Active Substance: FENTANYL
  2. MOVICOL [Concomitant]
     Active Substance: POLYETHYLENE GLYCOL 3350\POTASSIUM CHLORIDE\SODIUM BICARBONATE\SODIUM CHLORIDE
  3. RAMIPRIL. [Concomitant]
     Active Substance: RAMIPRIL
  4. DEKRISTOL 20000I.E. [Concomitant]
  5. VOMEX A [Concomitant]
     Active Substance: DIMENHYDRINATE
  6. QUENSYL [Suspect]
     Active Substance: HYDROXYCHLOROQUINE
     Dosage: 200 MILLIGRAM DAILY; 1-0-0-0
     Route: 048
  7. L-THYROXIN 50 [Concomitant]
     Active Substance: LEVOTHYROXINE SODIUM
  8. FUROSEMID [Concomitant]
     Active Substance: FUROSEMIDE
  9. LYRICA [Concomitant]
     Active Substance: PREGABALIN
  10. ALLOPURINOL. [Concomitant]
     Active Substance: ALLOPURINOL
  11. PERENTEROL FORTE 250MG [Concomitant]
  12. HYDROCHLOROTHIAZID [Concomitant]
     Active Substance: HYDROCHLOROTHIAZIDE
  13. PREDNISOLONE. [Suspect]
     Active Substance: PREDNISOLONE
     Dosage: 5 MILLIGRAM DAILY; 1-0-0-0
     Route: 048
  14. PANTOZOL [Concomitant]
     Active Substance: PANTOPRAZOLE SODIUM
  15. SIMVASTATIN. [Concomitant]
     Active Substance: SIMVASTATIN
  16. ASS 100 [Concomitant]
     Active Substance: ASPIRIN
  17. APIDRA [Concomitant]
     Active Substance: INSULIN GLULISINE
  18. NEBIVOLOL. [Concomitant]
     Active Substance: NEBIVOLOL
  19. NOVALGIN (METAMIZOLE SODIUM) [Concomitant]
     Active Substance: METAMIZOLE SODIUM
  20. PIPAMPERONE [Concomitant]
     Active Substance: PIPAMPERONE
  21. MAGNETRANS FORTE 150MG [Concomitant]
  22. TOUJEO 300 EINHEITEN/ML INJEKTIONSLOESUNG IN FERTIGPEN [Concomitant]
  23. ECURAL SALBE [Concomitant]
  24. IBEROGAST N [Concomitant]

REACTIONS (7)
  - Dysuria [Unknown]
  - Pyrexia [Unknown]
  - General physical health deterioration [Unknown]
  - Vomiting [Unknown]
  - Chest pain [Unknown]
  - Dyspnoea [Unknown]
  - Headache [Unknown]
